FAERS Safety Report 7700431-8 (Version None)
Quarter: 2011Q3

REPORT INFORMATION
  Report Type: 
  Country: None (occurrence: None)
  Receive Date: 20110816
  Receipt Date: 20110802
  Transmission Date: 20111222
  Serious: Yes (Hospitalization)
  Sender: FDA-Public Use
  Company Number: DSA_47379_2011

PATIENT
  Age: 88 Year
  Sex: Female

DRUGS (6)
  1. METOPROLOL 50 MG [Suspect]
     Indication: HYPERTENSION
     Dosage: (50 MG BID)
  2. LISINOPRIL [Suspect]
     Indication: HYPERTENSION
     Dosage: (40 MG (FREQUENCY) )
  3. CHLORTHALIDONE [Suspect]
     Indication: HYPERTENSION
     Dosage: (25 MG (FREQUENCY UNSPECIFIED) )
  4. HYDRALAZINE HCL [Suspect]
     Indication: HYPERTENSION
     Dosage: (50 MG BID)
  5. DILTIAZEM HYDROCHLORIDE [Suspect]
     Indication: HYPERTENSION
     Dosage: (180 MG DAILY)
  6. CLONIDINE [Suspect]
     Indication: HYPERTENSION
     Dosage: (0.3 MG 1X/WEEK TRANSDERMAL)
     Route: 062

REACTIONS (4)
  - PRESYNCOPE [None]
  - HAEMOGLOBIN DECREASED [None]
  - BRADYCARDIA [None]
  - FATIGUE [None]
